FAERS Safety Report 9702071 (Version 2)
Quarter: 2013Q4

REPORT INFORMATION
  Report Type: Report from Study
  Country: CA (occurrence: CA)
  Receive Date: 20131121
  Receipt Date: 20131121
  Transmission Date: 20140711
  Serious: Yes (Other)
  Sender: FDA-Public Use
  Company Number: CA-ABBVIE-13P-028-1053870-00

PATIENT
  Age: 45 Year
  Sex: Male

DRUGS (3)
  1. HUMIRA [Suspect]
     Indication: PSORIASIS
     Route: 058
     Dates: start: 20091113, end: 2012
  2. HUMIRA [Suspect]
     Route: 058
     Dates: start: 20121220
  3. HUMIRA [Suspect]
     Dosage: TOOK TWO INJECTIONS
     Route: 058
     Dates: start: 2013

REACTIONS (8)
  - Intervertebral disc degeneration [Recovering/Resolving]
  - Arthrodesis [Unknown]
  - Psoriasis [Recovering/Resolving]
  - Thrombosis [Recovered/Resolved]
  - Psoriasis [Recovering/Resolving]
  - Back pain [Not Recovered/Not Resolved]
  - Bursitis [Unknown]
  - Post procedural complication [Unknown]
